FAERS Safety Report 5871414-8 (Version None)
Quarter: 2008Q3

REPORT INFORMATION
  Report Type: 
  Country: None (occurrence: None)
  Receive Date: 20080905
  Receipt Date: 20080826
  Transmission Date: 20090109
  Serious: Yes (Other)
  Sender: FDA-Public Use
  Company Number: PHEH2008US07523

PATIENT
  Sex: Female

DRUGS (1)
  1. RITALIN [Suspect]
     Dosage: UNK

REACTIONS (9)
  - ABDOMINAL PAIN UPPER [None]
  - ANOREXIA [None]
  - CHEST PAIN [None]
  - DIZZINESS [None]
  - HAEMATOCHEZIA [None]
  - HAEMORRHAGE [None]
  - JOINT SWELLING [None]
  - NODULE [None]
  - SKIN DISCOLOURATION [None]
